FAERS Safety Report 8315146-5 (Version None)
Quarter: 2012Q2

REPORT INFORMATION
  Report Type: 
  Country: None (occurrence: None)
  Receive Date: 20120426
  Receipt Date: 20120419
  Transmission Date: 20120825
  Serious: Yes (Hospitalization)
  Sender: FDA-Public Use
  Company Number: US-GLAXOSMITHKLINE-A0956233A

PATIENT
  Age: 43 Year
  Sex: Female

DRUGS (1)
  1. AVANDIA [Suspect]
     Indication: DIABETES MELLITUS
     Dosage: 8MG PER DAY
     Dates: start: 20020701, end: 20030101

REACTIONS (4)
  - ISCHAEMIA [None]
  - CORONARY ARTERY DISEASE [None]
  - ANGINA UNSTABLE [None]
  - ARRHYTHMIA [None]
